FAERS Safety Report 4475762-8 (Version None)
Quarter: 2004Q4

REPORT INFORMATION
  Report Type: 
  Country: None (occurrence: None)
  Receive Date: 20041015
  Receipt Date: 20040915
  Transmission Date: 20050328
  Serious: Yes (Other)
  Sender: FDA-Public Use
  Company Number: US-GLAXOSMITHKLINE-A0525802A

PATIENT
  Age: 56 Year
  Sex: Female
  Weight: 80.5 kg

DRUGS (2)
  1. LOTRONEX [Suspect]
     Indication: IRRITABLE BOWEL SYNDROME
     Dosage: 1MG TWICE PER DAY
     Route: 048
     Dates: start: 20030116, end: 20040813
  2. ADVIL [Concomitant]

REACTIONS (2)
  - ABDOMINAL PAIN [None]
  - COLITIS ISCHAEMIC [None]
